FAERS Safety Report 22674969 (Version 2)
Quarter: 2023Q4

REPORT INFORMATION
  Report Type: Spontaneous
  Country: US (occurrence: US)
  Receive Date: 20230706
  Receipt Date: 20231006
  Transmission Date: 20240110
  Serious: No
  Sender: FDA-Public Use
  Company Number: US-BRISTOL-MYERS SQUIBB COMPANY-2023-094849

PATIENT
  Age: 63 Year
  Sex: Male

DRUGS (2)
  1. NULOJIX [Suspect]
     Active Substance: BELATACEPT
     Indication: Renal transplant
  2. NULOJIX [Suspect]
     Active Substance: BELATACEPT

REACTIONS (1)
  - Weight increased [Unknown]
